FAERS Safety Report 7274985-2 (Version None)
Quarter: 2011Q1

REPORT INFORMATION
  Report Type: 
  Country: None (occurrence: None)
  Receive Date: 20110204
  Receipt Date: 20110124
  Transmission Date: 20110831
  Serious: Yes (Hospitalization)
  Sender: FDA-Public Use
  Company Number: JP-AMGEN-US293440

PATIENT
  Age: 35 Year
  Sex: Female
  Weight: 50 kg

DRUGS (5)
  1. LOXONIN                            /00890702/ [Concomitant]
     Dosage: UNK UNK,
     Route: 048
     Dates: end: 20060124
  2. RHEUMATREX                         /00113802/ [Concomitant]
     Dosage: UNK
     Route: 048
  3. ORCL [Concomitant]
     Dosage: UNK UNK
     Route: 048
     Dates: start: 20050202, end: 20051209
  4. METHOTREXATE [Concomitant]
     Dosage: UNK UNK,
     Route: 048
     Dates: start: 20030101
  5. ENBREL [Suspect]
     Indication: RHEUMATOID ARTHRITIS
     Dosage: 25 MG, 2 TIMES/WK
     Route: 058
     Dates: start: 20051110, end: 20080605

REACTIONS (2)
  - GLOMERULONEPHRITIS [None]
  - INTERSTITIAL LUNG DISEASE [None]
